FAERS Safety Report 7661066-9 (Version None)
Quarter: 2011Q3

REPORT INFORMATION
  Report Type: 
  Country: None (occurrence: None)
  Receive Date: 20110805
  Receipt Date: 20101001
  Transmission Date: 20111222
  Serious: No
  Sender: FDA-Public Use
  Company Number: US-ABBOTT-10P-163-0675121-00

PATIENT
  Sex: Female
  Weight: 59.02 kg

DRUGS (6)
  1. FISH OIL [Concomitant]
     Indication: PRODUCT USED FOR UNKNOWN INDICATION
  2. NIASPAN [Suspect]
     Indication: LOW DENSITY LIPOPROTEIN INCREASED
  3. NIASPAN [Suspect]
     Indication: BLOOD TRIGLYCERIDES INCREASED
  4. ASPIRIN [Concomitant]
     Indication: PRODUCT USED FOR UNKNOWN INDICATION
  5. ALLERGY SHOTS [Concomitant]
     Indication: UPPER-AIRWAY COUGH SYNDROME
  6. ALLERGY SHOTS [Concomitant]
     Indication: HYPERSENSITIVITY

REACTIONS (5)
  - FEELING HOT [None]
  - SENSORY DISTURBANCE [None]
  - OESOPHAGEAL PAIN [None]
  - OROPHARYNGEAL PAIN [None]
  - PAINFUL RESPIRATION [None]
